FAERS Safety Report 4841405-4 (Version None)
Quarter: 2005Q4

REPORT INFORMATION
  Report Type: 
  Country: None (occurrence: None)
  Receive Date: 20051130
  Receipt Date: 20050412
  Transmission Date: 20060501
  Serious: Yes (Hospitalization, Other)
  Sender: FDA-Public Use
  Company Number: DE-MERCK-0504DEU00071B1

PATIENT
  Age: 0 Day
  Sex: Male
  Weight: 3 kg

DRUGS (2)
  1. ZETIA [Suspect]
     Indication: HYPERLIPIDAEMIA
     Dates: start: 20030206, end: 20050321
  2. ZOCOR [Concomitant]
     Dates: start: 20040315, end: 20050321

REACTIONS (11)
  - ANTITHROMBIN III DEFICIENCY [None]
  - FLATULENCE [None]
  - FOETAL DISORDER [None]
  - HYPOCALCAEMIA [None]
  - HYPOGLYCAEMIA [None]
  - HYPONATRAEMIA [None]
  - HYPOTENSION [None]
  - NEONATAL PNEUMONIA [None]
  - NEONATAL RESPIRATORY DISTRESS SYNDROME [None]
  - PREMATURE BABY [None]
  - SEPSIS NEONATAL [None]
